FAERS Safety Report 10950983 (Version 2)
Quarter: 2015Q2

REPORT INFORMATION
  Report Type: Spontaneous
  Country: US (occurrence: US)
  Receive Date: 20150324
  Receipt Date: 20150402
  Transmission Date: 20150821
  Serious: Yes (Other)
  Sender: FDA-Public Use
  Company Number: US-PFIZER INC-2015102020

PATIENT
  Age: 34 Year
  Sex: Female

DRUGS (3)
  1. PHENOBARBITAL. [Concomitant]
     Active Substance: PHENOBARBITAL
     Dosage: VAIOUS DOSES (UP TO 300 MG PER DAY)
  2. PHENYTOIN. [Suspect]
     Active Substance: PHENYTOIN
     Dosage: UNK (DOSES BETWEEN 160 AND 200 MG PER DAY)
  3. PHENYTOIN. [Suspect]
     Active Substance: PHENYTOIN
     Indication: SEIZURE
     Dosage: 30 MG, 4X/DAY

REACTIONS (2)
  - Neurodegenerative disorder [Unknown]
  - Anticonvulsant drug level increased [Unknown]
